FAERS Safety Report 8554354-5 (Version None)
Quarter: 2012Q3

REPORT INFORMATION
  Report Type: 
  Country: None (occurrence: None)
  Receive Date: 20120731
  Receipt Date: 20120719
  Transmission Date: 20120928
  Serious: No
  Sender: FDA-Public Use
  Company Number: US-009507513-2012SP033921

PATIENT

DRUGS (2)
  1. IMPLANON [Suspect]
     Indication: CONTRACEPTION
     Dates: start: 20090101
  2. IMPLANON [Suspect]

REACTIONS (2)
  - MEDICAL DEVICE COMPLICATION [None]
  - INCORRECT DRUG ADMINISTRATION DURATION [None]
